FAERS Safety Report 6582790-5 (Version None)
Quarter: 2010Q1

REPORT INFORMATION
  Report Type: 
  Country: None (occurrence: None)
  Receive Date: 20100216
  Receipt Date: 20100204
  Transmission Date: 20100710
  Serious: Yes (Hospitalization)
  Sender: FDA-Public Use
  Company Number: JP-PFIZER INC-2009198966

PATIENT
  Age: 61 Year
  Sex: Female
  Weight: 47.3 kg

DRUGS (7)
  1. SUNITINIB MALATE [Suspect]
     Indication: COLORECTAL CANCER
     Dosage: 37.5 MG, 1X/DAY
     Route: 048
     Dates: start: 20090324, end: 20090608
  2. IRINOTECAN HCL [Suspect]
     Indication: COLORECTAL CANCER
     Dosage: 253 MG, EVERY 2 WEEKS
     Route: 042
     Dates: start: 20090324, end: 20090630
  3. *FOLINIC ACID [Suspect]
     Indication: COLORECTAL CANCER
     Dosage: 281 MG, EVERY 2 WEEKS
     Route: 042
     Dates: start: 20090324, end: 20090630
  4. FLUOROURACIL [Suspect]
     Indication: COLORECTAL CANCER
     Dosage: 562 MG, EVERY 2 WEEKS
     Route: 040
     Dates: start: 20090324, end: 20090630
  5. FLUOROURACIL [Suspect]
     Dosage: 3375 MG, FOR 46 HOURS, EVERY 2 WEEKS
     Route: 041
     Dates: start: 20090324, end: 20090702
  6. GLIMEPIRIDE [Concomitant]
     Indication: DIABETES MELLITUS
     Dosage: UNK
     Route: 048
     Dates: start: 20090301
  7. ROSUVASTATIN CALCIUM [Concomitant]
     Indication: HYPERLIPIDAEMIA
     Dosage: UNK
     Route: 048
     Dates: start: 20090121

REACTIONS (1)
  - WOUND DECOMPOSITION [None]
